FAERS Safety Report 7111963-8 (Version None)
Quarter: 2010Q4

REPORT INFORMATION
  Report Type: 
  Country: None (occurrence: None)
  Receive Date: 20101119
  Receipt Date: 20101110
  Transmission Date: 20110411
  Serious: Yes (Hospitalization, Other)
  Sender: FDA-Public Use
  Company Number: NL-ELI_LILLY_AND_COMPANY-NL201011002726

PATIENT
  Sex: Male
  Weight: 69 kg

DRUGS (1)
  1. CIALIS [Suspect]
     Dosage: 10 MG, AS NEEDED
     Dates: start: 20070112, end: 20090820

REACTIONS (1)
  - RETINAL INFARCTION [None]
